FAERS Safety Report 8425260-1 (Version None)
Quarter: 2012Q2

REPORT INFORMATION
  Report Type: 
  Country: None (occurrence: None)
  Receive Date: 20120605
  Receipt Date: 20120524
  Transmission Date: 20120825
  Serious: Yes (Other)
  Sender: FDA-Public Use
  Company Number: 2012000129

PATIENT
  Age: 25 Year
  Weight: 49.5 kg

DRUGS (4)
  1. AMLODIPINE BESYLATE [Concomitant]
  2. BISOPROLOL FUMARATE [Concomitant]
  3. ACEON [Suspect]
     Indication: HYPERTENSION
     Dosage: 5 MG, QD, ORAL
     Route: 048
     Dates: end: 20120515
  4. SERETIDE (FLUTICASONE PROPIONATE, SALMETEROL XINAFOATE) [Concomitant]

REACTIONS (6)
  - HYPOTENSION [None]
  - HYPERSENSITIVITY [None]
  - HAEMODIALYSIS [None]
  - MALAISE [None]
  - NAUSEA [None]
  - MEDICAL DEVICE COMPLICATION [None]
